FAERS Safety Report 19642447 (Version 1)
Quarter: 2021Q3

REPORT INFORMATION
  Report Type: Spontaneous
  Country: US (occurrence: US)
  Receive Date: 20210730
  Receipt Date: 20210730
  Transmission Date: 20211014
  Serious: No
  Sender: FDA-Public Use
  Company Number: US-PERRIGO-21US000753

PATIENT
  Sex: Female

DRUGS (2)
  1. AMMONIUM LACTATE. [Suspect]
     Active Substance: AMMONIUM LACTATE
     Indication: DRY SKIN
     Dosage: UNKNOWN, PRN
     Route: 061
  2. AMMONIUM LACTATE. [Suspect]
     Active Substance: AMMONIUM LACTATE
     Indication: OFF LABEL USE
     Dosage: SMALL AMOUNT, ONCE
     Route: 048
     Dates: start: 20210111, end: 20210111

REACTIONS (1)
  - Off label use [Recovered/Resolved]

NARRATIVE: CASE EVENT DATE: 20210111
